FAERS Safety Report 4350937-7 (Version None)
Quarter: 2004Q2

REPORT INFORMATION
  Report Type: 
  Country: None (occurrence: None)
  Receive Date: 20040430
  Receipt Date: 20040401
  Transmission Date: 20050107
  Serious: Yes (Hospitalization)
  Sender: FDA-Public Use
  Company Number: FR-GLAXOSMITHKLINE-B0328904A

PATIENT
  Age: 34 Year
  Sex: Female
  Weight: 50 kg

DRUGS (19)
  1. DEROXAT [Suspect]
     Dosage: 20MG PER DAY
     Route: 048
     Dates: start: 20040205, end: 20040318
  2. CLINDAMYCIN HCL [Suspect]
     Dosage: 400MG THREE TIMES PER DAY
     Route: 048
     Dates: start: 20040301, end: 20040308
  3. TRACLEER [Suspect]
     Dosage: 62.5MG TWICE PER DAY
     Route: 048
     Dates: start: 20040306, end: 20040317
  4. FLODIL LP [Suspect]
     Dosage: 5MG PER DAY
     Route: 048
     Dates: start: 20040306, end: 20040318
  5. OMEPRAZOLE [Suspect]
     Dosage: 20MG PER DAY
     Route: 048
     Dates: start: 20040205, end: 20040318
  6. ILOMEDINE [Concomitant]
     Route: 042
     Dates: start: 20040205, end: 20040308
  7. TRANXENE [Concomitant]
  8. NICORETTE PATCH [Concomitant]
     Indication: DRUG WITHDRAWAL SYNDROME
     Route: 062
     Dates: start: 20040205
  9. CIPROFLOXACIN [Concomitant]
  10. MORPHINE [Concomitant]
     Dates: start: 20040210
  11. ACTISKENAN [Concomitant]
     Dates: start: 20040208
  12. KARDEGIC [Concomitant]
     Dates: start: 20040309
  13. MICROVAL [Concomitant]
  14. FORLAX [Concomitant]
     Dates: start: 20040216
  15. ZOLPIDEM TARTRATE [Concomitant]
     Dates: start: 20040302
  16. PYOSTACINE [Concomitant]
  17. DILTIAZEM HYDROCHLORIDE [Concomitant]
     Dates: start: 20030901
  18. AUGMENTIN [Concomitant]
     Route: 048
  19. ICAZ [Concomitant]
     Route: 048

REACTIONS (15)
  - ANAEMIA [None]
  - ASTHENIA [None]
  - DYSPNOEA [None]
  - FACE OEDEMA [None]
  - HYPOXIA [None]
  - INFLAMMATION [None]
  - LEUKOCYTOSIS [None]
  - OEDEMA [None]
  - PERICARDIAL EFFUSION [None]
  - PLEURAL EFFUSION [None]
  - POLYSEROSITIS [None]
  - PULMONARY OEDEMA [None]
  - PYREXIA [None]
  - SWELLING FACE [None]
  - WEIGHT INCREASED [None]
